FAERS Safety Report 23369075 (Version 2)
Quarter: 2024Q1

REPORT INFORMATION
  Report Type: Spontaneous
  Country: US (occurrence: US)
  Receive Date: 20240105
  Receipt Date: 20240226
  Transmission Date: 20240409
  Serious: No
  Sender: FDA-Public Use
  Company Number: US-HALEON-USCH2023067274

PATIENT

DRUGS (1)
  1. ADVIL [Suspect]
     Active Substance: IBUPROFEN
     Indication: COVID-19
     Dosage: 200 MG
     Route: 048

REACTIONS (2)
  - Product use in unapproved indication [Unknown]
  - Product complaint [Unknown]
